FAERS Safety Report 24025758 (Version 8)
Quarter: 2025Q4

REPORT INFORMATION
  Report Type: Spontaneous
  Country: EU (occurrence: EU)
  Receive Date: 20240628
  Receipt Date: 20251231
  Transmission Date: 20260117
  Serious: Yes (Hospitalization, Other)
  Sender: AUROBINDO
  Company Number: EU-GILEAD-2024-0675540

PATIENT
  Sex: Female
  Weight: 91.3 kg

DRUGS (60)
  1. CARBOPLATIN [Suspect]
     Active Substance: CARBOPLATIN
     Indication: Product used for unknown indication
     Dosage: 750 MILLIGRAM
     Dates: start: 20231009, end: 20231213
  2. CARBOPLATIN [Suspect]
     Active Substance: CARBOPLATIN
     Dosage: 750 MILLIGRAM
     Dates: start: 20231009, end: 20231009
  3. CARBOPLATIN [Suspect]
     Active Substance: CARBOPLATIN
     Dosage: 750 MILLIGRAM
     Dates: start: 20231102, end: 20231102
  4. CARBOPLATIN [Suspect]
     Active Substance: CARBOPLATIN
     Dosage: 750 MILLIGRAM
     Dates: start: 20231120, end: 20231120
  5. CARBOPLATIN [Suspect]
     Active Substance: CARBOPLATIN
     Dosage: 750 MILLIGRAM
     Dates: start: 20231213, end: 20231213
  6. PEMETREXED [Suspect]
     Active Substance: PEMETREXED
     Indication: Product used for unknown indication
     Dosage: 1060 MILLIGRAM
     Dates: start: 20231009, end: 20231009
  7. PEMETREXED [Suspect]
     Active Substance: PEMETREXED
     Dosage: 1060 MILLIGRAM
     Dates: start: 20231009, end: 20231120
  8. PEMETREXED [Suspect]
     Active Substance: PEMETREXED
     Dosage: 1060 MILLIGRAM
     Dates: start: 20231102, end: 20231102
  9. PEMETREXED [Suspect]
     Active Substance: PEMETREXED
     Dosage: 1060 MILLIGRAM
     Dates: start: 20231120, end: 20231120
  10. PEMETREXED [Suspect]
     Active Substance: PEMETREXED
     Dosage: 1055 MILLIGRAM
     Dates: start: 20231213, end: 20231213
  11. PEMETREXED [Suspect]
     Active Substance: PEMETREXED
     Dosage: 1055 MILLIGRAM
     Dates: start: 20231213, end: 20240417
  12. PEMETREXED [Suspect]
     Active Substance: PEMETREXED
     Dosage: 1055 MILLIGRAM
     Dates: start: 20240104, end: 20240104
  13. PEMETREXED [Suspect]
     Active Substance: PEMETREXED
     Dosage: 1055 MILLIGRAM
     Dates: start: 20240122, end: 20240122
  14. PEMETREXED [Suspect]
     Active Substance: PEMETREXED
     Dosage: 1055 MILLIGRAM
     Dates: start: 20240212, end: 20240212
  15. PEMETREXED [Suspect]
     Active Substance: PEMETREXED
     Dosage: 1055 MILLIGRAM
     Dates: start: 20240306, end: 20240306
  16. PEMETREXED [Suspect]
     Active Substance: PEMETREXED
     Dosage: 1055 MILLIGRAM
     Dates: start: 20240417, end: 20240417
  17. PEMETREXED [Suspect]
     Active Substance: PEMETREXED
     Dosage: 1055 MILLIGRAM
     Dates: start: 20240508, end: 20240529
  18. PEMETREXED [Suspect]
     Active Substance: PEMETREXED
     Dosage: 787.5 MILLIGRAM
     Dates: start: 20240508, end: 20240508
  19. PEMETREXED [Suspect]
     Active Substance: PEMETREXED
     Dosage: 1055 MILLIGRAM
     Dates: start: 20240327, end: 20240327
  20. PEMETREXED [Suspect]
     Active Substance: PEMETREXED
     Dosage: 787.5 MILLIGRAM
  21. PEMBROLIZUMAB [Suspect]
     Active Substance: PEMBROLIZUMAB
     Indication: Non-small cell lung cancer
     Dosage: 200 MILLIGRAM
  22. PEMBROLIZUMAB [Suspect]
     Active Substance: PEMBROLIZUMAB
     Dosage: 200 MILLIGRAM
  23. PEMBROLIZUMAB [Suspect]
     Active Substance: PEMBROLIZUMAB
     Dosage: 200 MILLIGRAM
  24. PEMBROLIZUMAB [Suspect]
     Active Substance: PEMBROLIZUMAB
     Dosage: 200 MILLIGRAM
  25. PEMBROLIZUMAB [Suspect]
     Active Substance: PEMBROLIZUMAB
     Dosage: 200 MILLIGRAM
     Dates: start: 20231213, end: 20231213
  26. PEMBROLIZUMAB [Suspect]
     Active Substance: PEMBROLIZUMAB
     Dosage: 200 MILLIGRAM
  27. PEMBROLIZUMAB [Suspect]
     Active Substance: PEMBROLIZUMAB
     Dosage: 200 MILLIGRAM
  28. PEMBROLIZUMAB [Suspect]
     Active Substance: PEMBROLIZUMAB
     Dosage: 200 MILLIGRAM
  29. PEMBROLIZUMAB [Suspect]
     Active Substance: PEMBROLIZUMAB
     Dosage: 200 MILLIGRAM
  30. PEMBROLIZUMAB [Suspect]
     Active Substance: PEMBROLIZUMAB
     Dosage: 200 MILLIGRAM
  31. PEMBROLIZUMAB [Suspect]
     Active Substance: PEMBROLIZUMAB
     Dosage: 200 MILLIGRAM
  32. PEMBROLIZUMAB [Suspect]
     Active Substance: PEMBROLIZUMAB
     Dosage: 200 MILLIGRAM
  33. PEMBROLIZUMAB [Suspect]
     Active Substance: PEMBROLIZUMAB
     Dosage: 200 MILLIGRAM
  34. ACETYLCYSTEINE [Concomitant]
     Active Substance: ACETYLCYSTEINE
     Indication: Cough
     Dosage: UNK
     Route: 061
  35. ALPRAZOLAM [Concomitant]
     Active Substance: ALPRAZOLAM
     Indication: Anxiety
     Dosage: UNK
     Route: 061
  36. BETAMETHASONE DIPROPIONATE\CLOTRIMAZOLE [Concomitant]
     Active Substance: BETAMETHASONE DIPROPIONATE\CLOTRIMAZOLE
     Indication: Psoriasis
     Dosage: UNK
     Route: 048
  37. BETAMETHASONE\CALCIPOTRIENE [Concomitant]
     Active Substance: BETAMETHASONE\CALCIPOTRIENE
     Indication: Psoriasis
     Dosage: UNK
     Route: 048
  38. BILASTINE [Concomitant]
     Active Substance: BILASTINE
     Indication: Photosensitivity reaction
     Dosage: UNK
     Route: 061
  39. CYANOCOBALAMIN [Concomitant]
     Active Substance: CYANOCOBALAMIN
     Indication: Premedication
     Dosage: UNK
  40. DEXAMETHASONE [Concomitant]
     Active Substance: DEXAMETHASONE
     Indication: Premedication
     Dosage: UNK
     Dates: start: 20240508, end: 20240508
  41. DEXAMETHASONE [Concomitant]
     Active Substance: DEXAMETHASONE
     Dosage: UNK
     Route: 061
     Dates: start: 20240528, end: 20240530
  42. DEXAMETHASONE [Concomitant]
     Active Substance: DEXAMETHASONE
     Dosage: UNK
  43. DOXYLAMINE [Concomitant]
     Active Substance: DOXYLAMINE
     Indication: Nausea
     Dosage: UNK
     Route: 061
  44. FERROUS SULFATE [Concomitant]
     Active Substance: FERROUS SULFATE
     Indication: Anaemia
     Dosage: UNK
     Route: 061
  45. FOLIC ACID [Concomitant]
     Active Substance: FOLIC ACID
     Indication: Premedication
     Dosage: UNK
     Route: 061
  46. FLUCONAZOLE [Concomitant]
     Active Substance: FLUCONAZOLE
     Indication: Stomatitis
     Dosage: UNK
     Route: 061
  47. FUROSEMIDE [Concomitant]
     Active Substance: FUROSEMIDE
     Indication: Hypertension
     Dosage: UNK
     Route: 061
  48. IBUPROFEN [Concomitant]
     Active Substance: IBUPROFEN
     Indication: Prophylaxis
     Dosage: UNK
     Route: 061
  49. LERCANIDIPINE [Concomitant]
     Active Substance: LERCANIDIPINE
     Indication: Hypertension
     Dosage: UNK
     Route: 061
  50. LIDOCAINE [Concomitant]
     Active Substance: LIDOCAINE
     Indication: Stomatitis
     Dosage: UNK
  51. METHYLPREDNISOLONE [Concomitant]
     Active Substance: METHYLPREDNISOLONE
     Indication: Photosensitivity reaction
     Dosage: UNK
     Route: 048
  52. METOCLOPRAMIDE [Concomitant]
     Active Substance: METOCLOPRAMIDE
     Indication: Prophylaxis
     Dosage: UNK
     Route: 061
  53. NETUPITANT AND PALONOSETRON HYDROCHLORIDE [Concomitant]
     Indication: Premedication
     Dosage: UNK
     Route: 061
     Dates: start: 20240508, end: 20240508
  54. NETUPITANT AND PALONOSETRON HYDROCHLORIDE [Concomitant]
     Dosage: UNK
     Route: 061
  55. NYSTATIN [Concomitant]
     Active Substance: NYSTATIN
     Indication: Stomatitis
     Dosage: UNK
  56. ACETAMINOPHEN [Concomitant]
     Active Substance: ACETAMINOPHEN
     Indication: Prophylaxis
     Dosage: UNK
     Route: 061
  57. SODIUM BICARBONATE [Concomitant]
     Active Substance: SODIUM BICARBONATE
     Indication: Stomatitis
     Dosage: UNK
  58. PIPERACILLIN SODIUM\TAZOBACTAM SODIUM [Concomitant]
     Active Substance: PIPERACILLIN SODIUM\TAZOBACTAM SODIUM
     Indication: Product used for unknown indication
     Dosage: UNK
     Route: 065
  59. PREDNISOLONE [Concomitant]
     Active Substance: PREDNISOLONE
     Indication: Diarrhoea
     Dosage: UNK
     Route: 061
     Dates: start: 20240612, end: 20240626
  60. MEXAZOLAM [Concomitant]
     Active Substance: MEXAZOLAM
     Indication: Anxiety
     Dosage: UNK
     Route: 061

REACTIONS (5)
  - Pancytopenia [Recovered/Resolved]
  - Decreased appetite [Recovered/Resolved]
  - Anaemia [Recovered/Resolved with Sequelae]
  - Infection [Recovered/Resolved]
  - Platelet count decreased [Recovered/Resolved]

NARRATIVE: CASE EVENT DATE: 20240603
